FAERS Safety Report 9225174 (Version 1)
Quarter: 2013Q2

REPORT INFORMATION
  Report Type: Spontaneous
  Country: US (occurrence: US)
  Receive Date: 20130411
  Receipt Date: 20130411
  Transmission Date: 20140414
  Serious: No
  Sender: FDA-Public Use
  Company Number: US-BAYER-2013-041252

PATIENT
  Sex: Male

DRUGS (1)
  1. GADAVIST [Suspect]
     Indication: COMPUTERISED TOMOGRAM HEAD
     Dosage: 1 MMOL GADOBUTROL /ML
     Route: 042
     Dates: start: 20130208

REACTIONS (1)
  - Urticaria [None]
